FAERS Safety Report 6341324-0 (Version None)
Quarter: 2009Q3

REPORT INFORMATION
  Report Type: 
  Country: None (occurrence: None)
  Receive Date: 20090904
  Receipt Date: 20090812
  Transmission Date: 20100115
  Serious: No
  Sender: FDA-Public Use
  Company Number: BR-ROCHE-651009

PATIENT
  Sex: Male
  Weight: 11.9 kg

DRUGS (1)
  1. TAMIFLU [Suspect]
     Dosage: TAMIFLU CAPSULES DILUTED IN WATER 5 ML, GIVEN 2 ML OF THIS SOLUTION MIXED WITH COCOA, TWICE PER DAY
     Route: 048
     Dates: start: 20090810

REACTIONS (4)
  - ABDOMINAL DISTENSION [None]
  - DRUG ADMINISTRATION ERROR [None]
  - RASH MACULAR [None]
  - SOMNOLENCE [None]
